FAERS Safety Report 6918577-0 (Version None)
Quarter: 2010Q3

REPORT INFORMATION
  Report Type: 
  Country: None (occurrence: None)
  Receive Date: 20100811
  Receipt Date: 20100802
  Transmission Date: 20110219
  Serious: Yes (Other)
  Sender: FDA-Public Use
  Company Number: BR-ASTRAZENECA-2010SE36225

PATIENT
  Age: 91 Year
  Sex: Female

DRUGS (5)
  1. SEROQUEL [Suspect]
     Indication: SEDATIVE THERAPY
     Route: 048
     Dates: start: 20080101, end: 20100701
  2. SEROQUEL [Suspect]
     Route: 048
     Dates: start: 20100701
  3. TAMOXIFEN CITRATE [Suspect]
     Indication: BREAST CANCER
     Route: 048
     Dates: start: 20080101
  4. MICARDIS [Concomitant]
     Indication: HYPERTENSION
     Route: 048
  5. EXELON [Concomitant]
     Indication: DEMENTIA ALZHEIMER'S TYPE
     Route: 048

REACTIONS (4)
  - BLOOD PRESSURE INCREASED [None]
  - BREAST CANCER [None]
  - INSOMNIA [None]
  - RESTLESSNESS [None]
